FAERS Safety Report 5292273-0 (Version None)
Quarter: 2007Q2

REPORT INFORMATION
  Report Type: 
  Country: None (occurrence: None)
  Receive Date: 20070403
  Receipt Date: 20070328
  Transmission Date: 20071010
  Serious: Yes (Life-Threatening, Hospitalization)
  Sender: FDA-Public Use
  Company Number: 2007-154406-NL

PATIENT
  Age: 16 Year
  Sex: Female

DRUGS (1)
  1. NUVARING [Suspect]
     Dosage: DF
     Dates: start: 20060101

REACTIONS (9)
  - ACUTE RESPIRATORY DISTRESS SYNDROME [None]
  - ARTHRALGIA [None]
  - MENINGISM [None]
  - NECK PAIN [None]
  - OOPHORITIS [None]
  - PAIN [None]
  - PERITONITIS [None]
  - SALPINGITIS [None]
  - TOXIC SHOCK SYNDROME STREPTOCOCCAL [None]
